FAERS Safety Report 4414173-8 (Version None)
Quarter: 2004Q3

REPORT INFORMATION
  Report Type: 
  Country: None (occurrence: None)
  Receive Date: 20040803
  Receipt Date: 20040726
  Transmission Date: 20050211
  Serious: Yes (Hospitalization, Other)
  Sender: FDA-Public Use
  Company Number: PHEH2004US08014

PATIENT
  Age: 58 Year
  Sex: Female
  Weight: 76 kg

DRUGS (6)
  1. ZELNORM [Suspect]
     Indication: IRRITABLE BOWEL SYNDROME
     Dosage: 1/2 6 MG TABLET QD
     Route: 048
  2. TOPAMAX [Concomitant]
     Indication: MIGRAINE
     Dosage: 12.5 MG, BID
     Route: 048
  3. NEURONTIN [Concomitant]
     Indication: MIGRAINE
     Dosage: 100 MG, BID
     Route: 048
  4. LIPITOR [Concomitant]
     Indication: HYPERLIPIDAEMIA
     Dosage: 10 MG, QHS
     Route: 048
  5. MIACALCIN [Concomitant]
     Indication: OSTEOPOROSIS
     Dosage: 1 SPRAY QD
  6. EXCEDRIN (MIGRAINE) [Concomitant]
     Dosage: UNK, PRN
     Route: 048

REACTIONS (16)
  - ABDOMINAL PAIN [None]
  - ASTHENIA [None]
  - BIOPSY COLON ABNORMAL [None]
  - COLITIS ISCHAEMIC [None]
  - COLONOSCOPY ABNORMAL [None]
  - COMPUTERISED TOMOGRAM ABNORMAL [None]
  - DIARRHOEA [None]
  - DIARRHOEA HAEMORRHAGIC [None]
  - ENTEROCOLITIS INFECTIOUS [None]
  - HAEMOLYTIC URAEMIC SYNDROME [None]
  - INTESTINAL ISCHAEMIA [None]
  - MELANOSIS COLI [None]
  - NAUSEA [None]
  - STOOLS WATERY [None]
  - VOMITING [None]
  - WHITE BLOOD CELL COUNT INCREASED [None]
